FAERS Safety Report 7978433-6 (Version None)
Quarter: 2011Q4

REPORT INFORMATION
  Report Type: 
  Country: None (occurrence: None)
  Receive Date: 20111205
  Receipt Date: 20111128
  Transmission Date: 20120403
  Serious: Yes (Hospitalization)
  Sender: FDA-Public Use
  Company Number: 2011SP021532

PATIENT
  Age: 54 Year
  Sex: Male

DRUGS (17)
  1. MIRTAZAPINE [Suspect]
     Indication: DEPRESSION
     Dosage: 15 MG;QD;PO
     Route: 048
     Dates: start: 20100101, end: 20101027
  2. CYMBALTA [Suspect]
     Indication: DEPRESSION
     Dosage: 20 MG;QD;PO, 40 MG;QD;PO, 60 MG;QD;PO
     Route: 048
     Dates: start: 20100821, end: 20100930
  3. CYMBALTA [Suspect]
     Indication: DEPRESSION
     Dosage: 20 MG;QD;PO, 40 MG;QD;PO, 60 MG;QD;PO
     Route: 048
     Dates: start: 20100830
  4. CYMBALTA [Suspect]
     Indication: DEPRESSION
     Dosage: 20 MG;QD;PO, 40 MG;QD;PO, 60 MG;QD;PO
     Route: 048
     Dates: end: 20100820
  5. NIFEDIPINE [Concomitant]
  6. RAMOSETRON HYDROCHLORIDE [Concomitant]
  7. ETIZOLAM [Concomitant]
  8. ETHYL ICOSAPENTATE [Concomitant]
  9. TELMISARTAN [Concomitant]
  10. AMOXAPINE [Suspect]
     Indication: DEPRESSION
     Dosage: 25 MG;QD;PO, 50 MG;QD;PO
     Route: 048
     Dates: end: 20101006
  11. AMOXAPINE [Suspect]
     Indication: DEPRESSION
     Dosage: 25 MG;QD;PO, 50 MG;QD;PO
     Route: 048
     Dates: start: 20101007, end: 20101027
  12. ESTAZOLAM [Concomitant]
  13. DOXAZOSIN MESYLATE [Concomitant]
  14. LEVOTHYROXINE SODIUM HYDRATE [Concomitant]
  15. LEVOFLOXACIN HYDRATE [Concomitant]
  16. METOPROLOL TARTRATE [Concomitant]
  17. OMEPRAZOLE [Concomitant]

REACTIONS (10)
  - RENAL IMPAIRMENT [None]
  - DRUG INEFFECTIVE [None]
  - ANAEMIA [None]
  - INFECTION [None]
  - URINARY RETENTION [None]
  - PYREXIA [None]
  - HAEMODIALYSIS [None]
  - C-REACTIVE PROTEIN INCREASED [None]
  - DYSURIA [None]
  - HEPATIC FUNCTION ABNORMAL [None]
